FAERS Safety Report 5067908-8 (Version None)
Quarter: 2006Q3

REPORT INFORMATION
  Report Type: 
  Country: None (occurrence: None)
  Receive Date: 20060714
  Receipt Date: 20051108
  Transmission Date: 20061208
  Serious: Yes (Hospitalization, Other)
  Sender: FDA-Public Use
  Company Number: HQWYE459709NOV05

PATIENT
  Age: 74 Year
  Sex: Female

DRUGS (11)
  1. ADVIL [Suspect]
     Indication: PAIN IN EXTREMITY
     Dates: start: 20030301
  2. CALCIUM (CALCIUM) [Concomitant]
  3. VITAMIN D [Concomitant]
  4. UNSPECIFIED VITAMINS (UNSPECIFIED VITAMINS) [Concomitant]
  5. BIOTIN [Concomitant]
  6. GLUCOSAMINE W/CHONDROITIN SULFATES (ASCORBIC ACID/CHONDROITIN SULFATE/ [Concomitant]
  7. VITAMIN B6 [Concomitant]
  8. UNSPECIFIED NUTRITIONAL SUPPLEMENT (UNSPECIFIED NUTRITIONAL SUPPLEMENT [Concomitant]
  9. LISINOPRIL [Concomitant]
  10. LIPITOR [Concomitant]
  11. UNSPECIFIED NUTRITIONAL SUPPLEMENT (UNSPECIFIED NUTRITIONAL SUPPLEMENT [Concomitant]

REACTIONS (1)
  - GASTRIC ULCER HAEMORRHAGE [None]
